FAERS Safety Report 7222157-X (Version None)
Quarter: 2011Q1

REPORT INFORMATION
  Report Type: 
  Country: None (occurrence: None)
  Receive Date: 20110112
  Receipt Date: 20110105
  Transmission Date: 20110831
  Serious: Yes (Hospitalization)
  Sender: FDA-Public Use
  Company Number: PHHO2010US16005

PATIENT
  Sex: Male

DRUGS (15)
  1. AMN107 [Suspect]
     Indication: MALIGNANT MELANOMA
     Dosage: 400 MG, BID
     Dates: start: 20101013, end: 20101017
  2. ALTACE [Concomitant]
  3. SULFASALAZINE [Concomitant]
  4. NIFEDIPINE [Concomitant]
  5. PLAVIX [Concomitant]
  6. ASPIRIN [Concomitant]
  7. BETA BLOCKING AGENTS [Concomitant]
  8. METOPROLOL [Concomitant]
  9. AMN107 [Suspect]
     Dosage: 400 MG, DAILY
     Dates: start: 20101111, end: 20101120
  10. AMN107 [Suspect]
     Dosage: 400 MG, DAILY
     Dates: start: 20101121, end: 20101130
  11. INTERLEUKIN-2 [Suspect]
  12. ASCORBIC ACID [Concomitant]
  13. CENTRUM SILVER [Concomitant]
  14. CITRACAL + D [Concomitant]
  15. ZOCOR [Concomitant]

REACTIONS (7)
  - TROPONIN INCREASED [None]
  - ELECTROCARDIOGRAM QT PROLONGED [None]
  - PAIN IN EXTREMITY [None]
  - ANGINA PECTORIS [None]
  - BUNDLE BRANCH BLOCK LEFT [None]
  - MYOSITIS [None]
  - CHEST PAIN [None]
